FAERS Safety Report 11253009 (Version 6)
Quarter: 2015Q4

REPORT INFORMATION
  Report Type: Report from Study
  Country: AU (occurrence: AU)
  Receive Date: 20150708
  Receipt Date: 20151028
  Transmission Date: 20160304
  Serious: Yes (Hospitalization, Other)
  Sender: FDA-Public Use
  Company Number: AU-ABBVIE-15P-008-1419436-00

PATIENT
  Sex: Female

DRUGS (5)
  1. OMBITASVIR/PARITAPREVIR/RITONAVIR [Suspect]
     Active Substance: OMBITASVIR\PARITAPREVIR\RITONAVIR
     Indication: HEPATITIS C
     Route: 048
     Dates: start: 20150605, end: 20150630
  2. LIPOX [Concomitant]
     Active Substance: BEZAFIBRATE
     Indication: CEREBROVASCULAR ACCIDENT
  3. DASABUVIR [Suspect]
     Active Substance: DASABUVIR
     Indication: HEPATITIS C
     Route: 048
     Dates: start: 20150605, end: 20150630
  4. LIPOX [Concomitant]
     Active Substance: BEZAFIBRATE
     Indication: CARDIOVASCULAR EVENT PROPHYLAXIS
     Route: 048
  5. RIBAVIRIN. [Suspect]
     Active Substance: RIBAVIRIN
     Indication: HEPATITIS C
     Route: 048
     Dates: start: 20150605, end: 20150630

REACTIONS (2)
  - Rhabdomyolysis [Unknown]
  - Cerebrovascular accident [Unknown]
